FAERS Safety Report 8863352 (Version 1)
Quarter: 2012Q4

REPORT INFORMATION
  Report Type: 
  Country: AU (occurrence: AU)
  Receive Date: 20121025
  Receipt Date: 20121025
  Transmission Date: 20130627
  Serious: Yes (Other)
  Sender: FDA-Public Use
  Company Number: AU-GLAXOSMITHKLINE-B0833262A

PATIENT
  Sex: Male

DRUGS (2)
  1. AROPAX [Suspect]
     Indication: ANXIETY DISORDER
     Route: 065
     Dates: start: 1999
  2. VALIUM [Concomitant]
     Indication: ANXIETY DISORDER
     Dosage: 5MG As required

REACTIONS (11)
  - Withdrawal syndrome [Not Recovered/Not Resolved]
  - Insomnia [Not Recovered/Not Resolved]
  - Abnormal dreams [Not Recovered/Not Resolved]
  - Sexual dysfunction [Not Recovered/Not Resolved]
  - Orgasm abnormal [Not Recovered/Not Resolved]
  - Dizziness [Not Recovered/Not Resolved]
  - Palpitations [Not Recovered/Not Resolved]
  - Hyperhidrosis [Not Recovered/Not Resolved]
  - Nightmare [Not Recovered/Not Resolved]
  - Head discomfort [Not Recovered/Not Resolved]
  - Dissociation [Not Recovered/Not Resolved]
